FAERS Safety Report 5375366-9 (Version None)
Quarter: 2007Q2

REPORT INFORMATION
  Report Type: 
  Country: None (occurrence: None)
  Receive Date: 20070629
  Receipt Date: 20070622
  Transmission Date: 20071010
  Serious: Yes (Other)
  Sender: FDA-Public Use
  Company Number: US-PFIZER INC-2005088363

PATIENT
  Sex: Male
  Weight: 62.6 kg

DRUGS (4)
  1. VIAGRA [Interacting]
     Indication: ERECTILE DYSFUNCTION
     Route: 048
  2. ENABLEX [Interacting]
     Indication: INCONTINENCE
  3. LEVITRA [Suspect]
     Indication: ERECTILE DYSFUNCTION
     Route: 048
  4. XANAX [Concomitant]

REACTIONS (11)
  - CYANOPSIA [None]
  - DRUG EFFECT DECREASED [None]
  - DRUG INTERACTION [None]
  - DYSPEPSIA [None]
  - ERECTILE DYSFUNCTION [None]
  - FEELING ABNORMAL [None]
  - FLUSHING [None]
  - HEADACHE [None]
  - PEYRONIE'S DISEASE [None]
  - SINUS CONGESTION [None]
  - STOMACH DISCOMFORT [None]
